FAERS Safety Report 26184317 (Version 1)
Quarter: 2025Q4

REPORT INFORMATION
  Report Type: Spontaneous
  Country: GB (occurrence: GB)
  Receive Date: 20251222
  Receipt Date: 20251222
  Transmission Date: 20260117
  Serious: Yes (Hospitalization, Other)
  Sender: CIPLA
  Company Number: GB-MHRA-MIDB-13dfeaaa-0af9-439d-80a0-fe115ad2085e

PATIENT

DRUGS (17)
  1. DAPAGLIFLOZIN [Suspect]
     Active Substance: DAPAGLIFLOZIN
     Indication: Product used for unknown indication
     Dosage: 10 MILLIGRAM, QD (ONE TABLET DAILY AT THE SAME TIME EACH DAY EVERY MORNING (OM))
     Route: 065
  2. CHOLECALCIFEROL [Concomitant]
     Active Substance: CHOLECALCIFEROL
     Indication: Product used for unknown indication
     Dosage: UNK (OVER THE WINTER)
     Route: 065
  3. COLLAGEN [Concomitant]
     Active Substance: COLLAGEN
     Indication: Product used for unknown indication
     Dosage: UNK (OTC)
     Route: 065
  4. TURMERIC + BLACK PEPPER [Concomitant]
     Indication: Product used for unknown indication
     Dosage: UNK
     Route: 065
  5. TURMERIC + BLACK PEPPER [Concomitant]
     Dosage: UNK
     Route: 065
  6. CLOTRIMAZOLE [Concomitant]
     Active Substance: CLOTRIMAZOLE
     Indication: Product used for unknown indication
     Dosage: 500 MG PESSARY (TO BE USED AS DIRECTED 1 PACK)
     Route: 065
  7. CLOTRIMAZOLE [Concomitant]
     Active Substance: CLOTRIMAZOLE
     Dosage: 2 PERCENT (2% CREAM) (TO BE USED AS DIRECTED 1 PACK)
     Route: 065
  8. AMLODIPINE [Concomitant]
     Active Substance: AMLODIPINE BESYLATE
     Indication: Blood pressure abnormal
     Dosage: 5MG, QD (ONE TO BE TAKEN EACH DAY)
     Route: 065
  9. LEVOTHYROXINE SODIUM [Concomitant]
     Active Substance: LEVOTHYROXINE SODIUM
     Indication: Hypothyroidism
     Dosage: 100 MICROGRAM, QD TABLETS (1 ONCE DAILY FOR UNDERACTIVE THROID)
     Route: 065
  10. LEVOTHYROXINE SODIUM [Concomitant]
     Active Substance: LEVOTHYROXINE SODIUM
     Dosage: 25 MICROGRAM TABLETS (LEVOTHYROXINE SODIUM 25 MICROGRAM TABLETS ONE TO BE TAKEN ON ALTERNATE DAYS+NB
     Route: 065
  11. PROGESTERONE [Concomitant]
     Active Substance: PROGESTERONE
     Indication: Hormone replacement therapy
     Dosage: UNK, QD (MICRONISED 100 MG CAPSULES, ONCE A DAY FOR HORMONE REPLACEMENT THERAPY (HRT) EVERY NIGHT (O
     Route: 065
     Dates: start: 20250812
  12. OMEPRAZOLE [Concomitant]
     Active Substance: OMEPRAZOLE
     Indication: Gastrooesophageal reflux disease
     Dosage: UNK, PRN (ONCE DAILY FOR ACID AS NEEDED - TAKES AS NECESSARY (PRN)
     Route: 065
  13. OMEPRAZOLE [Concomitant]
     Active Substance: OMEPRAZOLE
     Indication: Gastrointestinal haemorrhage
  14. OMEPRAZOLE [Concomitant]
     Active Substance: OMEPRAZOLE
     Indication: Mallory-Weiss syndrome
  15. ESTRADIOL [Concomitant]
     Active Substance: ESTRADIOL
     Indication: Product used for unknown indication
     Dosage: UNK, QD (UNK (GEL SACHETS, TO BE USED AS DIRECTED, 91 SACHET EVERY MORNING (OM))
     Route: 065
  16. FLUCONAZOLE [Concomitant]
     Active Substance: FLUCONAZOLE
     Indication: Product used for unknown indication
     Dosage: 150MG,  QD ((ONE TO BE TAKEN IMMEDIATELY))
     Route: 065
  17. METFORMIN [Concomitant]
     Active Substance: METFORMIN HYDROCHLORIDE
     Indication: Product used for unknown indication
     Dosage: UNK, TID (TWO TO BE TAKEN TWICE DAILY TAKES 1G EVERY MORNING (OM) 500MG LUNCH 500MG TEATIME)
     Route: 065

REACTIONS (1)
  - Diabetic ketoacidosis [Unknown]
